FAERS Safety Report 13381430 (Version 1)
Quarter: 2017Q1

REPORT INFORMATION
  Report Type: Spontaneous
  Country: AT (occurrence: AT)
  Receive Date: 20170329
  Receipt Date: 20170329
  Transmission Date: 20170429
  Serious: Yes (Other)
  Sender: FDA-Public Use
  Company Number: None

PATIENT

DRUGS (1)
  1. PREGABALIN. [Suspect]
     Active Substance: PREGABALIN
     Dates: start: 201303, end: 201411

REACTIONS (10)
  - Procedural pain [None]
  - Restlessness [None]
  - Tremor [None]
  - Depression [None]
  - Suicidal ideation [None]
  - Brain injury [None]
  - Crying [None]
  - Disturbance in attention [None]
  - Insomnia [None]
  - Withdrawal syndrome [None]

NARRATIVE: CASE EVENT DATE: 201411
